FAERS Safety Report 9649814 (Version 1)
Quarter: 2013Q4

REPORT INFORMATION
  Report Type: Spontaneous
  Country: US (occurrence: US)
  Receive Date: 20131028
  Receipt Date: 20131028
  Transmission Date: 20140711
  Serious: Yes (Death, Other)
  Sender: FDA-Public Use
  Company Number: US-NAPPMUNDI-USA-2012-0095122

PATIENT
  Age: 26 Year
  Sex: Female

DRUGS (2)
  1. OXYCODONE HCL CR TABLETS (SIMILAR TO NDA 20-553) [Suspect]
     Indication: BACK DISORDER
     Dosage: UNK UNK, SEE TEXT
     Route: 048
  2. HEROIN [Suspect]
     Indication: DRUG ABUSE

REACTIONS (3)
  - Overdose [Fatal]
  - Drug dependence [Unknown]
  - Substance abuse [Unknown]
